FAERS Safety Report 23406066 (Version 1)
Quarter: 2024Q1

REPORT INFORMATION
  Report Type: Spontaneous
  Country: US (occurrence: None)
  Receive Date: 20240114
  Receipt Date: 20240114
  Transmission Date: 20240410
  Serious: No
  Sender: FDA-Public Use
  Company Number: None

PATIENT

DRUGS (2)
  1. EDETIC ACID\GENTAMICIN\MUPIROCIN [Suspect]
     Active Substance: EDETIC ACID\GENTAMICIN\MUPIROCIN
  2. EDETATE DISODIUM\GENTAMICIN\ITRACONAZOLE\MUPIROCIN [Suspect]
     Active Substance: EDETATE DISODIUM\GENTAMICIN\ITRACONAZOLE\MUPIROCIN

REACTIONS (2)
  - Wrong product administered [None]
  - Product name confusion [None]
